FAERS Safety Report 10850833 (Version 1)
Quarter: 2015Q1

REPORT INFORMATION
  Report Type: Spontaneous
  Country: None (occurrence: US)
  Receive Date: 20150222
  Receipt Date: 20150222
  Transmission Date: 20150721
  Serious: Yes (Other)
  Sender: FDA-Public Use
  Company Number: US-ALLERGAN-1405282US

PATIENT
  Sex: Female

DRUGS (2)
  1. BOTOX COSMETIC [Suspect]
     Active Substance: ONABOTULINUMTOXINA
     Dosage: UNK
     Dates: start: 201304, end: 201304
  2. BOTOX COSMETIC [Suspect]
     Active Substance: ONABOTULINUMTOXINA
     Indication: EYELID PTOSIS
     Dosage: UNK, SINGLE
     Route: 030

REACTIONS (13)
  - Myasthenia gravis [Unknown]
  - Eyelid ptosis [Unknown]
  - Ocular hyperaemia [Unknown]
  - Off label use [Unknown]
  - Dysphonia [Unknown]
  - Eyelid ptosis [Not Recovered/Not Resolved]
  - Eye disorder [Unknown]
  - Sudden onset of sleep [Unknown]
  - Dry eye [Unknown]
  - Injection site pain [Unknown]
  - Dyspnoea [Unknown]
  - Fatigue [Unknown]
  - Vision blurred [Unknown]

NARRATIVE: CASE EVENT DATE: 201402
